FAERS Safety Report 12845259 (Version 1)
Quarter: 2016Q4

REPORT INFORMATION
  Report Type: Spontaneous
  Country: US (occurrence: US)
  Receive Date: 20161013
  Receipt Date: 20161013
  Transmission Date: 20170207
  Serious: Yes (Other)
  Sender: FDA-Public Use
  Company Number: US-THE MENTHOLATUM COMPANY-1058324

PATIENT
  Age: 82 Year
  Sex: Female
  Weight: 73.64 kg

DRUGS (1)
  1. EQUATE COOL AND HEAT EXTRA STRENGTH [Suspect]
     Active Substance: MENTHOL
     Route: 061
     Dates: start: 20160923, end: 20160924

REACTIONS (1)
  - Depression [Recovered/Resolved]

NARRATIVE: CASE EVENT DATE: 20160925
